FAERS Safety Report 8564250-5 (Version None)
Quarter: 2012Q3

REPORT INFORMATION
  Report Type: 
  Country: None (occurrence: None)
  Receive Date: 20120803
  Receipt Date: 20120731
  Transmission Date: 20120928
  Serious: Yes (Death, Hospitalization)
  Sender: FDA-Public Use
  Company Number: US-JNJFOC-20120800428

PATIENT
  Sex: Female
  Weight: 54.43 kg

DRUGS (6)
  1. SIMPONI [Suspect]
     Indication: RHEUMATOID ARTHRITIS
     Route: 058
     Dates: start: 20110101
  2. PREDNISONE [Concomitant]
  3. NITROGLYCERIN [Concomitant]
     Route: 048
  4. VERAPAMIL [Concomitant]
     Route: 048
  5. FOLIC ACID [Concomitant]
     Indication: NUTRITIONAL SUPPORT
     Route: 048
  6. METHOTREXATE [Concomitant]
     Indication: RHEUMATOID ARTHRITIS
     Route: 048

REACTIONS (4)
  - PULMONARY MASS [None]
  - ABNORMAL LOSS OF WEIGHT [None]
  - EMPHYSEMA [None]
  - BODY HEIGHT DECREASED [None]
